FAERS Safety Report 9845807 (Version 1)
Quarter: 2014Q1

REPORT INFORMATION
  Report Type: Report from Study
  Country: FR (occurrence: FR)
  Receive Date: 20140127
  Receipt Date: 20140127
  Transmission Date: 20141002
  Serious: Yes (Hospitalization)
  Sender: FDA-Public Use
  Company Number: US-ASTRAZENECA-2014SE05467

PATIENT
  Age: 80 Year
  Sex: Male

DRUGS (7)
  1. KENZEN [Suspect]
     Indication: CARDIAC FAILURE
     Route: 048
     Dates: end: 20130708
  2. PREVISCAN [Concomitant]
     Route: 048
  3. TEMERIT [Concomitant]
     Route: 048
  4. LASILIX [Concomitant]
     Route: 048
  5. AMIODARONE [Concomitant]
     Route: 048
  6. GELOX [Concomitant]
     Route: 048
  7. KALEORID [Concomitant]
     Route: 048

REACTIONS (2)
  - Weight decreased [Recovering/Resolving]
  - Decreased appetite [Recovering/Resolving]
